FAERS Safety Report 10270661 (Version 2)
Quarter: 2014Q3

REPORT INFORMATION
  Report Type: Spontaneous
  Country: US (occurrence: US)
  Receive Date: 20140701
  Receipt Date: 20140701
  Transmission Date: 20150326
  Serious: Yes (Hospitalization)
  Sender: FDA-Public Use
  Company Number: US-PFIZER INC-2014166020

PATIENT
  Age: 2 Year
  Sex: Male
  Weight: 12 kg

DRUGS (1)
  1. ADVIL [Suspect]
     Active Substance: IBUPROFEN
     Dosage: 8 G, (FORTY 200 MG TABLETS)
     Route: 048

REACTIONS (3)
  - Overdose [Recovered/Resolved]
  - Accidental exposure to product [Recovered/Resolved]
  - Metabolic acidosis [Recovered/Resolved]
